FAERS Safety Report 13451033 (Version 2)
Quarter: 2017Q2

REPORT INFORMATION
  Report Type: Spontaneous
  Country: US (occurrence: US)
  Receive Date: 20170418
  Receipt Date: 20170511
  Transmission Date: 20170830
  Serious: Yes (Hospitalization, Other)
  Sender: FDA-Public Use
  Company Number: US-BRISTOL-MYERS SQUIBB COMPANY-BMS-2017-032047

PATIENT
  Age: 79 Year
  Sex: Male

DRUGS (1)
  1. SPRYCEL [Suspect]
     Active Substance: DASATINIB
     Indication: MYELOID LEUKAEMIA
     Dosage: 1 TAB, QD
     Route: 048
     Dates: start: 20170322, end: 20170502

REACTIONS (7)
  - Fatigue [Not Recovered/Not Resolved]
  - Upper limb fracture [Unknown]
  - Incisional drainage [Unknown]
  - Decreased appetite [Not Recovered/Not Resolved]
  - Arthritis infective [Recovering/Resolving]
  - Hypersomnia [Not Recovered/Not Resolved]
  - Oedema peripheral [Not Recovered/Not Resolved]

NARRATIVE: CASE EVENT DATE: 20170409
